FAERS Safety Report 7226672-4 (Version None)
Quarter: 2011Q1

REPORT INFORMATION
  Report Type: 
  Country: None (occurrence: None)
  Receive Date: 20110114
  Receipt Date: 20090924
  Transmission Date: 20110831
  Serious: Yes (Death, Hospitalization)
  Sender: FDA-Public Use
  Company Number: LB-NOVOPROD-289535

PATIENT

DRUGS (3)
  1. NOVOSEVEN [Suspect]
     Dosage: 90 UG/KG,
     Route: 042
  2. NOVOSEVEN [Suspect]
     Dosage: 70 UG/KG, UNK
     Route: 042
  3. OCTREOTIDE ACETATE [Concomitant]
     Dosage: CONTINIOUS INFUSION

REACTIONS (1)
  - CARDIAC ARREST [None]
